FAERS Safety Report 7900840-8 (Version None)
Quarter: 2011Q4

REPORT INFORMATION
  Report Type: 
  Country: None (occurrence: None)
  Receive Date: 20111108
  Receipt Date: 20111108
  Transmission Date: 20120403
  Serious: Yes (Life-Threatening, Disabling, Other)
  Sender: FDA-Public Use
  Company Number: None

PATIENT
  Age: 46 Year
  Sex: Female
  Weight: 83.914 kg

DRUGS (1)
  1. KERANIQUE [Suspect]
     Indication: ALOPECIA
     Dosage: TWICE A DAY 1ML
     Route: 061
     Dates: start: 20111025, end: 20111028

REACTIONS (1)
  - UNEVALUABLE EVENT [None]
